FAERS Safety Report 7798208-0 (Version None)
Quarter: 2011Q4

REPORT INFORMATION
  Report Type: 
  Country: None (occurrence: None)
  Receive Date: 20111005
  Receipt Date: 20110930
  Transmission Date: 20120403
  Serious: Yes (Other)
  Sender: FDA-Public Use
  Company Number: US-BAYER-2011-093746

PATIENT
  Age: 63 Year
  Sex: Male

DRUGS (2)
  1. MAGNEVIST [Suspect]
     Indication: NUCLEAR MAGNETIC RESONANCE IMAGING BRAIN
     Dosage: 7 ML, ONCE
     Dates: start: 20110623, end: 20110623
  2. MAGNEVIST [Suspect]
     Dosage: 7 ML, ONCE
     Dates: start: 20110623, end: 20110623

REACTIONS (3)
  - OEDEMA PERIPHERAL [None]
  - CONTUSION [None]
  - PAIN IN EXTREMITY [None]
